FAERS Safety Report 7138603-6 (Version None)
Quarter: 2010Q4

REPORT INFORMATION
  Report Type: 
  Country: None (occurrence: None)
  Receive Date: 20101104
  Receipt Date: 20101021
  Transmission Date: 20110411
  Serious: Yes (Other)
  Sender: FDA-Public Use
  Company Number: 2010026792

PATIENT
  Age: 70 Year
  Sex: Female

DRUGS (2)
  1. HUMATE-P [Suspect]
     Dosage: 1000 IU 3X/WEEK INTRAVENOUS
     Route: 042
  2. VENOFER [Suspect]
     Dosage: 300 MG 1X/2 WEEKS INTRAVENOUS
     Route: 042

REACTIONS (1)
  - DEVICE OCCLUSION [None]
